FAERS Safety Report 6030231-9 (Version None)
Quarter: 2009Q1

REPORT INFORMATION
  Report Type: 
  Country: None (occurrence: None)
  Receive Date: 20090107
  Receipt Date: 20090102
  Transmission Date: 20090719
  Serious: Yes (Hospitalization)
  Sender: FDA-Public Use
  Company Number: IT-ROCHE-606248

PATIENT
  Sex: Female

DRUGS (4)
  1. ROCEPHIN [Suspect]
     Indication: HYPERPYREXIA
     Dosage: DOSAGE REGIMEN: 1XOD
     Route: 042
     Dates: start: 20081218, end: 20081219
  2. MINITRAN [Concomitant]
     Dosage: STRENGTH AND FORMULATION REPORTED AS 10 MG PATCH. DOSAGE REGIMEN: 1 X UNK
     Route: 062
  3. LAMICTAL [Concomitant]
     Dosage: STRENGTH AND FORMULATION REPORTED AS 100 MG TAB. DOSAGE REGIMEN: 1 X UNK
  4. PERINDOPRIL ERBUMINE [Concomitant]
     Dosage: STRENGTH AND FORMULATION REPORTED AS 10 MG TAB. DOSAGE REGIMEN: 1 X UNK

REACTIONS (1)
  - VASCULITIS [None]
